FAERS Safety Report 8361879-4 (Version None)
Quarter: 2012Q2

REPORT INFORMATION
  Report Type: 
  Country: None (occurrence: None)
  Receive Date: 20120515
  Receipt Date: 20120507
  Transmission Date: 20120825
  Serious: No
  Sender: FDA-Public Use
  Company Number: US-MUTUAL PHARMACEUTICAL COMPANY, INC.-SDBC20120001

PATIENT
  Sex: Female
  Weight: 68.1 kg

DRUGS (13)
  1. SODIUM BICARB 10 GR [Suspect]
     Indication: ACIDOSIS
     Route: 048
     Dates: start: 20120425, end: 20120505
  2. CIPROFLOXACIN [Suspect]
     Indication: URINARY TRACT INFECTION
     Route: 048
     Dates: start: 20120502, end: 20120506
  3. CLONIDINE [Concomitant]
     Indication: HYPERTENSION
     Route: 048
  4. VITAMIN A WITH VITAMIN D [Concomitant]
     Indication: GASTRIC STAPLING
     Route: 048
  5. LASIX [Concomitant]
     Indication: HYPERTENSION
     Route: 048
     Dates: end: 20120504
  6. BENADRYL [Concomitant]
     Indication: MULTIPLE ALLERGIES
     Route: 048
  7. POTASSIUM CHLORIDE [Concomitant]
     Indication: ELECTROLYTE SUBSTITUTION THERAPY
     Route: 048
     Dates: end: 20120504
  8. LASIX [Concomitant]
     Route: 048
     Dates: start: 20120505
  9. THYROID TAB [Concomitant]
     Indication: AUTOIMMUNE THYROIDITIS
     Route: 048
  10. LOVAZA [Concomitant]
     Indication: PROPHYLAXIS
     Route: 048
  11. ASCORBIC ACID [Concomitant]
     Indication: MULTIPLE ALLERGIES
     Route: 048
  12. VITAMIN D [Concomitant]
     Indication: HYPOVITAMINOSIS
     Route: 048
  13. POTASSIUM CHLORIDE [Concomitant]
     Route: 048
     Dates: start: 20120505

REACTIONS (9)
  - OEDEMA PERIPHERAL [None]
  - GAIT DISTURBANCE [None]
  - DYSPNOEA [None]
  - JOINT SWELLING [None]
  - TREMOR [None]
  - EYE SWELLING [None]
  - TINNITUS [None]
  - SWELLING FACE [None]
  - WEIGHT INCREASED [None]
